FAERS Safety Report 25606841 (Version 1)
Quarter: 2025Q3

REPORT INFORMATION
  Report Type: Spontaneous
  Country: CA (occurrence: CA)
  Receive Date: 20250725
  Receipt Date: 20250725
  Transmission Date: 20251020
  Serious: Yes (Hospitalization)
  Sender: FRESENIUS KABI
  Company Number: CA-FreseniusKabi-FK202510235

PATIENT
  Age: 30 Year
  Sex: Male
  Weight: 70 kg

DRUGS (1)
  1. PIPERACILLIN SODIUM\TAZOBACTAM SODIUM [Suspect]
     Active Substance: PIPERACILLIN SODIUM\TAZOBACTAM SODIUM
     Indication: Product used for unknown indication
     Dosage: FOA- NOT SPECIFIED
     Route: 042

REACTIONS (1)
  - Alanine aminotransferase increased [Recovered/Resolved]
